FAERS Safety Report 17467351 (Version 5)
Quarter: 2020Q4

REPORT INFORMATION
  Report Type: Spontaneous
  Country: US (occurrence: US)
  Receive Date: 20200227
  Receipt Date: 20201026
  Transmission Date: 20210113
  Serious: No
  Sender: FDA-Public Use
  Company Number: US-PFIZER INC-2019021913

PATIENT
  Age: 67 Year
  Sex: Female

DRUGS (1)
  1. XELJANZ XR [Suspect]
     Active Substance: TOFACITINIB CITRATE
     Indication: ARTHRITIS
     Dosage: 11 MG, DAILY

REACTIONS (4)
  - Pain in extremity [Unknown]
  - Bronchitis [Unknown]
  - Peripheral swelling [Unknown]
  - Arthropod sting [Unknown]

NARRATIVE: CASE EVENT DATE: 20200901
